FAERS Safety Report 20167926 (Version 2)
Quarter: 2021Q4

REPORT INFORMATION
  Report Type: Spontaneous
  Country: US (occurrence: US)
  Receive Date: 20211210
  Receipt Date: 20211230
  Transmission Date: 20220303
  Serious: Yes (Other)
  Sender: FDA-Public Use
  Company Number: US-MLMSERVICE-20211125-3236753-1

PATIENT
  Age: 80 Year
  Sex: Male

DRUGS (14)
  1. METHOTREXATE [Suspect]
     Active Substance: METHOTREXATE
     Indication: Prophylaxis
     Dosage: 45 MILLIGRAM 3YCLE (15MG)
     Route: 037
  2. CYCLOPHOSPHAMIDE [Suspect]
     Active Substance: CYCLOPHOSPHAMIDE
     Indication: Double hit lymphoma
     Dosage: 2250 MILLIGRAM/SQ. METER 3 CYCLE (750 MG/M2)
     Route: 065
  3. CYCLOPHOSPHAMIDE [Suspect]
     Active Substance: CYCLOPHOSPHAMIDE
     Indication: Richter^s syndrome
  4. PREDNISONE [Suspect]
     Active Substance: PREDNISONE
     Indication: Double hit lymphoma
     Dosage: 180 MILLIGRAM/SQ. METER, 3 CYCLE (60 MG/M2/DAY)
     Route: 065
  5. PREDNISONE [Suspect]
     Active Substance: PREDNISONE
     Indication: Richter^s syndrome
  6. RITUXIMAB [Suspect]
     Active Substance: RITUXIMAB
     Indication: Double hit lymphoma
     Dosage: 1125 MILLIGRAM/SQ. METER 3 CYCLE (375 MG/M2)
     Route: 065
  7. RITUXIMAB [Suspect]
     Active Substance: RITUXIMAB
     Indication: Richter^s syndrome
  8. VINCRISTINE [Suspect]
     Active Substance: VINCRISTINE
     Indication: Richter^s syndrome
     Dosage: 1.2 MILLIGRAM/SQ. METER 3 CYCLE (0.4 MG/M2/DAY)
     Route: 065
  9. VINCRISTINE [Suspect]
     Active Substance: VINCRISTINE
     Indication: Double hit lymphoma
  10. ETOPOSIDE [Suspect]
     Active Substance: ETOPOSIDE
     Indication: Richter^s syndrome
     Dosage: 150 MILLIGRAM/SQ. METER 3 CYCLE (50 MG/M2/DAY)
     Route: 065
  11. ETOPOSIDE [Suspect]
     Active Substance: ETOPOSIDE
     Indication: Double hit lymphoma
  12. DOXORUBICIN HYDROCHLORIDE [Suspect]
     Active Substance: DOXORUBICIN HYDROCHLORIDE
     Indication: Double hit lymphoma
     Dosage: 30 MILLIGRAM/SQ. METER 3 CYCLE (10 MG/ M2/DAY)
     Route: 065
  13. DOXORUBICIN HYDROCHLORIDE [Suspect]
     Active Substance: DOXORUBICIN HYDROCHLORIDE
     Indication: Richter^s syndrome
  14. NEULASTA [Concomitant]
     Active Substance: PEGFILGRASTIM
     Indication: Product used for unknown indication
     Dosage: 6 MILLIGRAM
     Route: 058

REACTIONS (5)
  - Anaemia [Unknown]
  - Haematotoxicity [Unknown]
  - Ejection fraction decreased [Unknown]
  - Thrombocytopenia [Unknown]
  - Dyspnoea [Unknown]
